FAERS Safety Report 7782117-7 (Version None)
Quarter: 2011Q3

REPORT INFORMATION
  Report Type: 
  Country: None (occurrence: None)
  Receive Date: 20110927
  Receipt Date: 20110920
  Transmission Date: 20111222
  Serious: Yes (Hospitalization)
  Sender: FDA-Public Use
  Company Number: US-ELI_LILLY_AND_COMPANY-US201002005960

PATIENT
  Sex: Female
  Weight: 48.526 kg

DRUGS (18)
  1. XOPENEX [Concomitant]
     Indication: CHRONIC OBSTRUCTIVE PULMONARY DISEASE
     Route: 055
     Dates: start: 20090305
  2. MIRALAX [Concomitant]
     Indication: CONSTIPATION
     Dosage: 17 MG, DAILY (1/D)
  3. COMPAZINE [Concomitant]
     Indication: VOMITING
     Dosage: 10 MG, 4/D
  4. CETUXIMAB [Suspect]
     Indication: NON-SMALL CELL LUNG CANCER
     Dosage: 370 MG, OTHER
     Route: 042
     Dates: start: 20090302, end: 20090330
  5. DEXAMETHASONE [Concomitant]
     Indication: PROPHYLAXIS
     Dosage: 4 MG, 2/D
  6. FOLIC ACID [Concomitant]
     Indication: PROPHYLAXIS
     Dosage: 1 MG, DAILY (1/D)
     Route: 048
  7. PEMETREXED [Suspect]
     Indication: NON-SMALL CELL LUNG CANCER
     Dosage: 740 MG, OTHER
     Route: 042
     Dates: start: 20090302, end: 20090323
  8. RESTORIL [Concomitant]
     Indication: INSOMNIA
     Dosage: 15 MG, AS NEEDED
     Route: 048
  9. ZOFRAN [Concomitant]
     Indication: NAUSEA
     Dosage: 8 MG, AS NEEDED
  10. SPIRIVA [Concomitant]
     Indication: CHRONIC OBSTRUCTIVE PULMONARY DISEASE
     Route: 055
  11. DURAGESIC-100 [Concomitant]
     Indication: BACK PAIN
     Dosage: 600 UG, UNK
     Route: 062
  12. COMBIVENT [Concomitant]
     Indication: CHRONIC OBSTRUCTIVE PULMONARY DISEASE
     Route: 055
  13. ALBUTEROL [Concomitant]
     Indication: CHRONIC OBSTRUCTIVE PULMONARY DISEASE
     Dosage: UNK, AS NEEDED
     Route: 055
  14. OXYCODONE [Concomitant]
     Indication: BACK PAIN
     Dosage: 5 MG, AS NEEDED
  15. SINGULAIR [Concomitant]
     Indication: ASTHMA
     Dosage: 10 MG, DAILY (1/D)
     Route: 048
  16. PERCOCET [Concomitant]
     Indication: BACK PAIN
     Dates: start: 20080710
  17. DURAGESIC-100 [Concomitant]
     Dosage: 1200 UG, UNK
     Route: 062
  18. VITAMIN B-12 [Concomitant]
     Dosage: 1000 UG, UNK
     Route: 030

REACTIONS (3)
  - VOMITING [None]
  - DEHYDRATION [None]
  - NAUSEA [None]
